FAERS Safety Report 5352767-6 (Version None)
Quarter: 2007Q2

REPORT INFORMATION
  Report Type: 
  Country: None (occurrence: None)
  Receive Date: 20070611
  Receipt Date: 20070529
  Transmission Date: 20071010
  Serious: Yes (Other)
  Sender: FDA-Public Use
  Company Number: US-ELI_LILLY_AND_COMPANY-US200705007842

PATIENT
  Age: 62 Year
  Sex: Male

DRUGS (3)
  1. CYMBALTA [Suspect]
  2. HUMULIN 70/30 [Concomitant]
  3. LOPRESSOR [Concomitant]

REACTIONS (4)
  - BLOOD PRESSURE INCREASED [None]
  - CARDIAC FAILURE CONGESTIVE [None]
  - CONCOMITANT DISEASE AGGRAVATED [None]
  - ELECTROCARDIOGRAM QT PROLONGED [None]
